FAERS Safety Report 12741171 (Version 1)
Quarter: 2016Q3

REPORT INFORMATION
  Report Type: Report from Study
  Country: AT (occurrence: AT)
  Receive Date: 20160914
  Receipt Date: 20160914
  Transmission Date: 20161109
  Serious: Yes (Hospitalization, Other)
  Sender: FDA-Public Use
  Company Number: PHHY2016AT053748

PATIENT
  Sex: Female
  Weight: 63 kg

DRUGS (12)
  1. AFINITOR [Suspect]
     Active Substance: EVEROLIMUS
     Dosage: ALTERNATING DOSE OF 5 MG AND 10 MG
     Route: 065
     Dates: start: 20160311, end: 20160412
  2. CAELYX [Concomitant]
     Active Substance: DOXORUBICIN HYDROCHLORIDE
     Indication: PRODUCT USED FOR UNKNOWN INDICATION
     Dosage: 63 MG, QW3
     Route: 065
  3. AFINITOR [Suspect]
     Active Substance: EVEROLIMUS
     Dosage: ALTERNATING DOSE OF 5 MG AND 10 MG
     Route: 065
     Dates: start: 20160614, end: 20160707
  4. AFINITOR [Suspect]
     Active Substance: EVEROLIMUS
     Dosage: 10 MG, UNK
     Route: 065
     Dates: start: 20160223, end: 20160310
  5. AFINITOR [Suspect]
     Active Substance: EVEROLIMUS
     Dosage: UNK
     Route: 065
     Dates: end: 20160813
  6. AFINITOR [Suspect]
     Active Substance: EVEROLIMUS
     Indication: INVASIVE DUCTAL BREAST CARCINOMA
     Dosage: 5 MG, UNK
     Route: 065
     Dates: start: 20160111, end: 20160121
  7. AFINITOR [Suspect]
     Active Substance: EVEROLIMUS
     Dosage: ALTERNATING DOSE OF 5 MG AND 10 MG
     Route: 065
     Dates: start: 20160122, end: 20160222
  8. EXEMESTAN [Concomitant]
     Active Substance: EXEMESTANE
     Indication: PRODUCT USED FOR UNKNOWN INDICATION
     Dosage: 25 MG, UNK
     Route: 065
     Dates: start: 20160111
  9. AFINITOR [Suspect]
     Active Substance: EVEROLIMUS
     Dosage: 10 MG, UNK
     Route: 065
     Dates: start: 20160503, end: 20160608
  10. ERYTHROMYCIN. [Concomitant]
     Active Substance: ERYTHROMYCIN
     Indication: PRODUCT USED FOR UNKNOWN INDICATION
     Dosage: 500, 2 INTO 1 FOR 5 DAYS
     Route: 065
  11. AFINITOR [Suspect]
     Active Substance: EVEROLIMUS
     Dosage: 5 MG, UNK
     Route: 065
     Dates: start: 20160708, end: 20160804
  12. AFINITOR [Suspect]
     Active Substance: EVEROLIMUS
     Dosage: 5 MG, UNK
     Route: 065
     Dates: start: 20160810, end: 20160812

REACTIONS (6)
  - Ascites [Unknown]
  - Fall [Unknown]
  - Erysipelas [Recovering/Resolving]
  - Malignant neoplasm progression [Not Recovered/Not Resolved]
  - Breast inflammation [Recovered/Resolved]
  - Injury [Unknown]

NARRATIVE: CASE EVENT DATE: 20160412
